FAERS Safety Report 9679560 (Version 1)
Quarter: 2013Q4

REPORT INFORMATION
  Report Type: Spontaneous
  Country: US (occurrence: US)
  Receive Date: 20131109
  Receipt Date: 20131109
  Transmission Date: 20140711
  Serious: No
  Sender: FDA-Public Use
  Company Number: US-009507513-1310USA009758

PATIENT
  Age: 54 Year
  Sex: Female

DRUGS (2)
  1. EMEND [Suspect]
     Indication: COLON CANCER
     Dosage: UNK
     Route: 042
     Dates: end: 20131015
  2. FLUOROURACIL (+) LEUCOVORIN CALCIUM (+) OXALIPLATIN [Concomitant]

REACTIONS (3)
  - Chest pain [Recovered/Resolved]
  - Flushing [Recovered/Resolved]
  - Abdominal pain upper [Recovered/Resolved]
